FAERS Safety Report 18747628 (Version 3)
Quarter: 2021Q1

REPORT INFORMATION
  Report Type: Report from Study
  Country: CA (occurrence: CA)
  Receive Date: 20210115
  Receipt Date: 20210216
  Transmission Date: 20210419
  Serious: Yes (Hospitalization, Other)
  Sender: FDA-Public Use
  Company Number: CA-ASTRAZENECA-2021A005039

PATIENT
  Sex: Male

DRUGS (8)
  1. ATORVASTATIN [Concomitant]
     Active Substance: ATORVASTATIN
  2. CALQUENCE [Suspect]
     Active Substance: ACALABRUTINIB
     Indication: CHRONIC LYMPHOCYTIC LEUKAEMIA
     Route: 048
     Dates: start: 20201130
  3. ELIQUIS [Concomitant]
     Active Substance: APIXABAN
  4. ZOPICLONE [Concomitant]
     Active Substance: ZOPICLONE
  5. MIRTAZAPINE. [Concomitant]
     Active Substance: MIRTAZAPINE
  6. SOTALOL. [Concomitant]
     Active Substance: SOTALOL
  7. FUROSEMIDE. [Concomitant]
     Active Substance: FUROSEMIDE
  8. METFORMIN [Concomitant]
     Active Substance: METFORMIN HYDROCHLORIDE

REACTIONS (5)
  - Blood pressure decreased [Recovering/Resolving]
  - Anxiety [Not Recovered/Not Resolved]
  - Swelling face [Not Recovered/Not Resolved]
  - Pleural effusion [Not Recovered/Not Resolved]
  - Acidosis [Unknown]
